FAERS Safety Report 19677747 (Version 1)
Quarter: 2021Q3

REPORT INFORMATION
  Report Type: Spontaneous
  Country: CN (occurrence: CN)
  Receive Date: 20210809
  Receipt Date: 20210809
  Transmission Date: 20211014
  Serious: Yes (Other)
  Sender: FDA-Public Use
  Company Number: CN-PFIZER INC-202100978058

PATIENT
  Age: 33 Year
  Sex: Male
  Weight: 51.7 kg

DRUGS (3)
  1. METHOTREXATE. [Suspect]
     Active Substance: METHOTREXATE
     Dosage: 4500 MG, 1X/DAY
     Route: 041
     Dates: start: 20210708, end: 20210708
  2. METHOTREXATE. [Suspect]
     Active Substance: METHOTREXATE
     Indication: CHEMOTHERAPY
     Dosage: 500 MG, 1X/DAY
     Route: 041
     Dates: start: 20210708, end: 20210708
  3. CYTOSAR [Suspect]
     Active Substance: CYTARABINE
     Indication: CHEMOTHERAPY
     Dosage: 1500 MG, 2X/DAY
     Route: 041
     Dates: start: 20210709, end: 20210711

REACTIONS (1)
  - Myelosuppression [Recovering/Resolving]

NARRATIVE: CASE EVENT DATE: 20210715
